FAERS Safety Report 15364125 (Version 2)
Quarter: 2018Q3

REPORT INFORMATION
  Report Type: Spontaneous
  Country: US (occurrence: US)
  Receive Date: 20180909
  Receipt Date: 20180921
  Transmission Date: 20181010
  Serious: No
  Sender: FDA-Public Use
  Company Number: US-JNJFOC-20180821183

PATIENT
  Age: 75 Year
  Sex: Male
  Weight: 70.31 kg

DRUGS (11)
  1. LASIX [Concomitant]
     Active Substance: FUROSEMIDE
     Route: 065
     Dates: start: 20170110
  2. SPIRONOLACTONE. [Concomitant]
     Active Substance: SPIRONOLACTONE
     Dosage: HALF TAB EVERY DAY IN THE MORNING
     Route: 065
     Dates: start: 20170110
  3. XARELTO [Suspect]
     Active Substance: RIVAROXABAN
     Indication: ATRIAL FIBRILLATION
     Route: 048
     Dates: start: 20170106
  4. REVLIMID [Concomitant]
     Active Substance: LENALIDOMIDE
     Indication: PLATELET COUNT ABNORMAL
     Route: 065
     Dates: start: 20160110
  5. XARELTO [Suspect]
     Active Substance: RIVAROXABAN
     Indication: CEREBROVASCULAR ACCIDENT PROPHYLAXIS
     Route: 048
     Dates: start: 20170106
  6. AMIODARONE [Interacting]
     Active Substance: AMIODARONE
     Indication: CARDIAC FLUTTER
     Route: 065
  7. REVLIMID [Concomitant]
     Active Substance: LENALIDOMIDE
     Indication: PLATELET COUNT ABNORMAL
     Route: 065
  8. XARELTO [Suspect]
     Active Substance: RIVAROXABAN
     Indication: CEREBROVASCULAR ACCIDENT PROPHYLAXIS
     Route: 048
  9. XARELTO [Suspect]
     Active Substance: RIVAROXABAN
     Indication: ATRIAL FIBRILLATION
     Route: 048
  10. AMIODARONE [Interacting]
     Active Substance: AMIODARONE
     Indication: CARDIAC FLUTTER
     Route: 065
     Dates: start: 20180103
  11. METOPROLOL. [Concomitant]
     Active Substance: METOPROLOL
     Dosage: HALF TAB EVERY DAY IN THE MORNING
     Route: 065
     Dates: start: 20170110

REACTIONS (6)
  - Oedema peripheral [Unknown]
  - Haemoptysis [Unknown]
  - Drug interaction [Unknown]
  - Haemoglobin decreased [Unknown]
  - Mouth haemorrhage [Not Recovered/Not Resolved]
  - Contusion [Not Recovered/Not Resolved]

NARRATIVE: CASE EVENT DATE: 2017
